FAERS Safety Report 4556671-2 (Version None)
Quarter: 2005Q1

REPORT INFORMATION
  Report Type: 
  Country: None (occurrence: None)
  Receive Date: 20050118
  Receipt Date: 20050105
  Transmission Date: 20050727
  Serious: Yes (Hospitalization)
  Sender: FDA-Public Use
  Company Number: TPA2005A00017

PATIENT
  Age: 73 Year
  Sex: Female

DRUGS (3)
  1. ACTOS [Suspect]
     Indication: DIABETES MELLITUS
     Dosage: 15 MG, 1 IN 1 D, PER ORAL
     Route: 048
  2. METOPROLOL TARTRATE [Suspect]
  3. METFORMIN HCL [Concomitant]

REACTIONS (6)
  - DYSPNOEA PAROXYSMAL NOCTURNAL [None]
  - JUGULAR VEIN DISTENSION [None]
  - OEDEMA PERIPHERAL [None]
  - PITTING OEDEMA [None]
  - PULMONARY OEDEMA [None]
  - WEIGHT DECREASED [None]
